FAERS Safety Report 6552264-6 (Version None)
Quarter: 2010Q1

REPORT INFORMATION
  Report Type: 
  Country: None (occurrence: None)
  Receive Date: 20100121
  Receipt Date: 20100111
  Transmission Date: 20100710
  Serious: Yes (Other)
  Sender: FDA-Public Use
  Company Number: 10-000054

PATIENT
  Age: 24 Year
  Sex: Female
  Weight: 49.9 kg

DRUGS (5)
  1. LOESTRIN 24 FE (NORETHINDRONE ACETATE, ETHINYL ESTRADIOL, FERROUS FUMA [Suspect]
     Indication: CONTRACEPTION
     Dosage: 20/1000 UG TABLET DAILY, ORAL
     Route: 048
     Dates: start: 20060101
  2. LOESTRIN 24 FE (NORETHINDRONE ACETATE, ETHINYL ESTRADIOL, FERROUS FUMA [Suspect]
     Indication: MENSTRUATION IRREGULAR
     Dosage: 20/1000 UG TABLET DAILY, ORAL
     Route: 048
     Dates: start: 20060101
  3. DTAP (DIPHTHERIA, TETANUS AND ACELLULAR PERTUSSIS) [Suspect]
     Dates: start: 20080101, end: 20080101
  4. KEPPRA [Concomitant]
  5. VITAMIN B 12 (HYDROXOCOBALAMIN) [Concomitant]

REACTIONS (5)
  - BLOOD CHOLESTEROL INCREASED [None]
  - INCORRECT DOSE ADMINISTERED [None]
  - LOW DENSITY LIPOPROTEIN INCREASED [None]
  - TRAUMATIC BRAIN INJURY [None]
  - VACCINATION COMPLICATION [None]
